FAERS Safety Report 9445291 (Version 1)
Quarter: 2013Q3

REPORT INFORMATION
  Report Type: Spontaneous
  Country: DE (occurrence: DE)
  Receive Date: 20130807
  Receipt Date: 20130807
  Transmission Date: 20140515
  Serious: Yes (Hospitalization, Other)
  Sender: FDA-Public Use
  Company Number: DE-GLAXOSMITHKLINE-D0080717A

PATIENT
  Age: 0 None
  Sex: Female
  Weight: 2.6 kg

DRUGS (4)
  1. LAMOTRIGINE [Suspect]
     Indication: EPILEPSY
     Dosage: 25MG PER DAY
     Route: 064
     Dates: start: 20080211, end: 20081017
  2. MORPHIN [Suspect]
     Indication: PAIN
     Dosage: 12MCG SEE DOSAGE TEXT
     Route: 023
     Dates: start: 20080926, end: 20081015
  3. EUTHYROX [Concomitant]
     Indication: HYPOTHYROIDISM
     Dosage: 25MCG PER DAY
     Route: 064
     Dates: start: 20080211, end: 20081017
  4. FOLIC ACID [Concomitant]
     Indication: PROPHYLAXIS OF NEURAL TUBE DEFECT
     Dosage: .8MG PER DAY
     Route: 064

REACTIONS (5)
  - Feeding disorder neonatal [Recovered/Resolved]
  - Neonatal tachypnoea [Recovered/Resolved]
  - Hypoglycaemia neonatal [Recovered/Resolved]
  - Weight decrease neonatal [Recovered/Resolved]
  - Foetal exposure during pregnancy [Unknown]
